FAERS Safety Report 9871824 (Version 2)
Quarter: 2014Q1

REPORT INFORMATION
  Report Type: Spontaneous
  Country: CA (occurrence: CA)
  Receive Date: 20140205
  Receipt Date: 20140312
  Transmission Date: 20141002
  Serious: Yes (Hospitalization, Other)
  Sender: FDA-Public Use
  Company Number: PHHY2014CA011577

PATIENT
  Age: 75 Year
  Sex: Male

DRUGS (3)
  1. ENALAPRIL SANDOZ [Suspect]
     Indication: HYPERTENSION
     Dosage: 5 MG, BID
     Route: 048
     Dates: start: 20140119
  2. VITAMIN D [Concomitant]
     Dosage: 1000 IU, QD
  3. SYNTHROID [Concomitant]
     Dosage: 50 UG, QD

REACTIONS (4)
  - Fall [Unknown]
  - Hypertensive crisis [Unknown]
  - Chest pain [Unknown]
  - Abdominal pain [Unknown]
